FAERS Safety Report 6828524-8 (Version None)
Quarter: 2010Q3

REPORT INFORMATION
  Report Type: 
  Country: None (occurrence: None)
  Receive Date: 20100709
  Receipt Date: 20070214
  Transmission Date: 20110219
  Serious: No
  Sender: FDA-Public Use
  Company Number: US-PFIZER INC-2007013269

PATIENT
  Sex: Female
  Weight: 60.78 kg

DRUGS (6)
  1. CHANTIX [Suspect]
     Indication: SMOKING CESSATION THERAPY
     Route: 048
     Dates: start: 20070208
  2. ETODOLAC [Concomitant]
  3. ALLEGRA D 24 HOUR [Concomitant]
     Indication: NASAL CONGESTION
  4. ALLEGRA D 24 HOUR [Concomitant]
     Indication: MULTIPLE ALLERGIES
  5. PRAVASTATIN [Concomitant]
  6. ZYBAN [Concomitant]

REACTIONS (2)
  - PRURITUS [None]
  - RASH [None]
